FAERS Safety Report 8282013-5 (Version None)
Quarter: 2012Q2

REPORT INFORMATION
  Report Type: 
  Country: None (occurrence: None)
  Receive Date: 20120413
  Receipt Date: 20120405
  Transmission Date: 20120825
  Serious: Yes (Hospitalization)
  Sender: FDA-Public Use
  Company Number: US-BAYER-2011-102904

PATIENT
  Age: 32 Year
  Sex: Female
  Weight: 74.83 kg

DRUGS (10)
  1. YAZ [Suspect]
     Indication: CONTRACEPTION
     Dosage: UNK
     Dates: start: 20090714, end: 20091027
  2. YAZ [Suspect]
     Indication: PREMENSTRUAL SYNDROME
  3. NORGESTIMATE AND ETHINYL ESTRADIOL [Concomitant]
     Dosage: UNK
     Dates: start: 20030101, end: 20090101
  4. MIDRIN [Concomitant]
     Dosage: UNK
     Dates: start: 20090901
  5. YASMIN [Suspect]
     Indication: CONTRACEPTION
     Dosage: UNK
     Dates: start: 20041001, end: 20050201
  6. YASMIN [Suspect]
     Indication: PREMENSTRUAL SYNDROME
  7. YAZ [Suspect]
     Indication: ACNE
  8. YASMIN [Suspect]
     Indication: ACNE
  9. ORTHO TRI-CYCLEN LO [Concomitant]
     Dosage: UNK
     Dates: start: 20030101, end: 20090101
  10. IMITREX [Concomitant]
     Dosage: UNK
     Dates: start: 20090901

REACTIONS (7)
  - DEEP VEIN THROMBOSIS [None]
  - PAIN [None]
  - INJURY [None]
  - FEAR [None]
  - EMOTIONAL DISTRESS [None]
  - PULMONARY EMBOLISM [None]
  - ANHEDONIA [None]
